FAERS Safety Report 9840695 (Version 1)
Quarter: 2014Q1

REPORT INFORMATION
  Report Type: Report from Study
  Country: US (occurrence: US)
  Receive Date: 20140124
  Receipt Date: 20140124
  Transmission Date: 20141002
  Serious: Yes (Death)
  Sender: FDA-Public Use
  Company Number: PHEH2014US001627

PATIENT
  Sex: Female

DRUGS (1)
  1. TOBI [Suspect]
     Indication: BRONCHIECTASIS
     Dosage: 300 MG, BID
     Route: 055
     Dates: start: 20130912

REACTIONS (1)
  - Death [Fatal]
